FAERS Safety Report 8393294-1 (Version None)
Quarter: 2012Q2

REPORT INFORMATION
  Report Type: 
  Country: None (occurrence: None)
  Receive Date: 20120529
  Receipt Date: 20120522
  Transmission Date: 20120825
  Serious: Yes (Other)
  Sender: FDA-Public Use
  Company Number: JP-PFIZER INC-2011303845

PATIENT
  Age: 21 Month
  Sex: Female
  Weight: 30 kg

DRUGS (3)
  1. SOLU-MEDROL [Interacting]
     Indication: NEPHROTIC SYNDROME
     Dosage: 375 MG, 1X/DAY
     Route: 041
     Dates: start: 20091125, end: 20091127
  2. NEORAL [Suspect]
     Indication: NEPHROTIC SYNDROME
     Dosage: UNK
     Dates: start: 20091125
  3. PREDNISOLONE [Concomitant]
     Indication: NEPHROTIC SYNDROME
     Dosage: 40 MG, 1X/DAY
     Dates: start: 20090607

REACTIONS (2)
  - CLONIC CONVULSION [None]
  - HYPERTENSIVE ENCEPHALOPATHY [None]
